FAERS Safety Report 9078650 (Version 1)
Quarter: 2013Q1

REPORT INFORMATION
  Report Type: Report from Study
  Country: US (occurrence: US)
  Receive Date: 20130130
  Receipt Date: 20130130
  Transmission Date: 20140127
  Serious: No
  Sender: FDA-Public Use
  Company Number: US-ABBOTT-12P-163-0976823-00

PATIENT
  Age: 19 Year
  Sex: Female

DRUGS (3)
  1. HUMIRA [Suspect]
     Indication: CROHN^S DISEASE
     Dates: start: 20120803
  2. PREDNISONE [Concomitant]
     Indication: PRODUCT USED FOR UNKNOWN INDICATION
     Dosage: 10MG BY MOUTH DAILY
  3. ESCITALOPRAM [Concomitant]
     Indication: DEPRESSION
     Dosage: 20MG BY MOUTH DAILY

REACTIONS (2)
  - Injection site pain [Not Recovered/Not Resolved]
  - Anxiety [Unknown]
